FAERS Safety Report 9217473 (Version 4)
Quarter: 2013Q2

REPORT INFORMATION
  Report Type: Spontaneous
  Country: JP (occurrence: JP)
  Receive Date: 20130408
  Receipt Date: 20130430
  Transmission Date: 20140414
  Serious: Yes (Hospitalization)
  Sender: FDA-Public Use
  Company Number: JP-009507513-1304JPN001641

PATIENT
  Age: 69 Year
  Sex: Female
  Weight: 54 kg

DRUGS (7)
  1. PEGINTRON [Suspect]
     Indication: CHRONIC HEPATITIS C
     Dosage: 1.5 MICROGRAM PER KILOGRAM, QW
     Route: 058
     Dates: start: 20130215
  2. REBETOL [Suspect]
     Indication: CHRONIC HEPATITIS C
     Dosage: 400 MG, QD
     Route: 048
     Dates: start: 20130215, end: 20130322
  3. REBETOL [Suspect]
     Dosage: 200 MG, QD
     Route: 048
     Dates: start: 20130401
  4. REBETOL [Suspect]
     Dosage: 400MG,QD
     Route: 048
     Dates: start: 20130403
  5. REBETOL [Suspect]
     Dosage: UNK
  6. TELAVIC [Suspect]
     Indication: CHRONIC HEPATITIS C
     Dosage: 1500MG, QD
     Route: 048
     Dates: start: 20130215, end: 20130322
  7. AMLODIN (AMLODIPINE BESYLATE) [Concomitant]
     Dosage: 2.5 MG, QD
     Route: 048

REACTIONS (1)
  - Erythema multiforme [Recovered/Resolved]
